FAERS Safety Report 7000703-9 (Version None)
Quarter: 2010Q3

REPORT INFORMATION
  Report Type: 
  Country: None (occurrence: None)
  Receive Date: 20100920
  Receipt Date: 20091123
  Transmission Date: 20110219
  Serious: Yes (Other)
  Sender: FDA-Public Use
  Company Number: US-ASTRAZENECA-2009UW03108

PATIENT
  Age: 550 Month
  Sex: Female
  Weight: 101.2 kg

DRUGS (6)
  1. SEROQUEL [Suspect]
     Indication: BIPOLAR DISORDER
     Dosage: 300MG-400MG
     Route: 048
     Dates: start: 20070601, end: 20081201
  2. GEODON [Concomitant]
  3. DIAZEPAM [Concomitant]
     Dates: start: 20080101
  4. MIRTAZAPINE [Concomitant]
     Dates: start: 20080101
  5. RISPERDAL [Concomitant]
     Dates: start: 20080101
  6. PEVEXA [Concomitant]
     Dates: start: 20080101

REACTIONS (2)
  - DIABETES MELLITUS [None]
  - PANCREATITIS [None]
